FAERS Safety Report 7536288-8 (Version None)
Quarter: 2011Q2

REPORT INFORMATION
  Report Type: 
  Country: None (occurrence: None)
  Receive Date: 20110608
  Receipt Date: 20110608
  Transmission Date: 20111010
  Serious: Yes (Other)
  Sender: FDA-Public Use
  Company Number: None

PATIENT
  Age: 45 Year
  Weight: 68.0396 kg

DRUGS (4)
  1. SABRIL [Suspect]
     Indication: EPILEPSY
     Dosage: 500 PO BID
     Route: 048
     Dates: start: 20110522, end: 20110604
  2. TRILEPTAL [Concomitant]
  3. TRANXENE [Concomitant]
  4. LAMICTAL [Concomitant]

REACTIONS (4)
  - OEDEMA PERIPHERAL [None]
  - SWELLING FACE [None]
  - DYSPNOEA [None]
  - CHEST DISCOMFORT [None]
